FAERS Safety Report 21683476 (Version 2)
Quarter: 2022Q4

REPORT INFORMATION
  Report Type: Spontaneous
  Country: NO (occurrence: NO)
  Receive Date: 20221205
  Receipt Date: 20221228
  Transmission Date: 20230113
  Serious: Yes (Other)
  Sender: FDA-Public Use
  Company Number: NO-JNJFOC-20221161469

PATIENT
  Sex: Male

DRUGS (2)
  1. APALUTAMIDE [Suspect]
     Active Substance: APALUTAMIDE
     Indication: Prostate cancer metastatic
     Route: 048
     Dates: start: 202110, end: 202202
  2. HYDROCORTISONE [Concomitant]
     Active Substance: HYDROCORTISONE
     Indication: Rash
     Route: 065

REACTIONS (4)
  - Dermatitis exfoliative generalised [Recovered/Resolved]
  - General physical health deterioration [Recovering/Resolving]
  - Lower urinary tract symptoms [Unknown]
  - Radiation proctitis [Unknown]

NARRATIVE: CASE EVENT DATE: 20211101
